FAERS Safety Report 5663312-X (Version None)
Quarter: 2008Q1

REPORT INFORMATION
  Report Type: 
  Country: None (occurrence: None)
  Receive Date: 20080307
  Receipt Date: 20080303
  Transmission Date: 20080703
  Serious: Yes (Death, Hospitalization)
  Sender: FDA-Public Use
  Company Number: 2008-172517-NL

PATIENT
  Age: 59 Year
  Sex: Male

DRUGS (2)
  1. VECURONIUM BROMIDE [Suspect]
     Dosage: 1 MG Q1HR
     Dates: start: 20080212, end: 20080216
  2. PROPOFOL [Concomitant]

REACTIONS (1)
  - ALTERED STATE OF CONSCIOUSNESS [None]
